FAERS Safety Report 12480748 (Version 1)
Quarter: 2016Q2

REPORT INFORMATION
  Report Type: Spontaneous
  Country: US (occurrence: None)
  Receive Date: 20160620
  Receipt Date: 20160620
  Transmission Date: 20160815
  Serious: Yes (Other)
  Sender: FDA-Public Use
  Company Number: None

PATIENT
  Age: 30 Year
  Sex: Female
  Weight: 63.5 kg

DRUGS (1)
  1. APLISOL [Suspect]
     Active Substance: TUBERCULIN PURIFIED PROTEIN DERIVATIVE
     Indication: TUBERCULIN TEST
     Route: 023
     Dates: start: 20160517, end: 20160615

REACTIONS (6)
  - Blood glucose decreased [None]
  - Nausea [None]
  - Tremor [None]
  - Abdominal rigidity [None]
  - Tachycardia [None]
  - Blood pressure increased [None]

NARRATIVE: CASE EVENT DATE: 20160615
